FAERS Safety Report 22204113 (Version 4)
Quarter: 2023Q2

REPORT INFORMATION
  Report Type: Spontaneous
  Country: US (occurrence: US)
  Receive Date: 20230412
  Receipt Date: 20230629
  Transmission Date: 20230721
  Serious: No
  Sender: FDA-Public Use
  Company Number: US-PFIZER INC-202300150143

PATIENT
  Age: 88 Year
  Sex: Female
  Weight: 78.005 kg

DRUGS (4)
  1. PREMARIN [Suspect]
     Active Substance: ESTROGENS, CONJUGATED
     Indication: Autoimmune thyroiditis
     Dosage: UNK
  2. PREMARIN [Suspect]
     Active Substance: ESTROGENS, CONJUGATED
     Dosage: SHE IS TAKING A PARTIAL DOSE, ^ONLY TAKING ONCE A WEEK^
  3. PREMARIN [Suspect]
     Active Substance: ESTROGENS, CONJUGATED
     Dosage: 0.625 3 X WEEK
  4. PREMARIN [Suspect]
     Active Substance: ESTROGENS, CONJUGATED
     Dosage: 0.625 3 X WEEK REDUCED TO 2 X WEEKLY
     Dates: start: 202302

REACTIONS (6)
  - Peripheral swelling [Unknown]
  - Lymphorrhoea [Unknown]
  - Ulcer [Unknown]
  - Off label use [Unknown]
  - Drug ineffective for unapproved indication [Unknown]
  - Off label use [Unknown]

NARRATIVE: CASE EVENT DATE: 20230201
